FAERS Safety Report 24877101 (Version 3)
Quarter: 2025Q3

REPORT INFORMATION
  Report Type: Spontaneous
  Country: JP (occurrence: JP)
  Receive Date: 20250123
  Receipt Date: 20250803
  Transmission Date: 20251020
  Serious: Yes (Other)
  Sender: ALEXION PHARMACEUTICALS
  Company Number: JP-ASTRAZENECA-250005165_063610_P_1

PATIENT
  Age: 80 Year
  Sex: Female

DRUGS (8)
  1. LOKELMA [Suspect]
     Active Substance: SODIUM ZIRCONIUM CYCLOSILICATE
     Indication: Hyperkalaemia
  2. LOKELMA [Suspect]
     Active Substance: SODIUM ZIRCONIUM CYCLOSILICATE
  3. CARVEDILOL [Concomitant]
     Active Substance: CARVEDILOL
  4. CARVEDILOL [Concomitant]
     Active Substance: CARVEDILOL
  5. NIFEDIPINE [Concomitant]
     Active Substance: NIFEDIPINE
  6. NIFEDIPINE [Concomitant]
     Active Substance: NIFEDIPINE
  7. SODIUM POLYSTYRENE SULFONATE [Concomitant]
     Active Substance: SODIUM POLYSTYRENE SULFONATE
  8. SODIUM POLYSTYRENE SULFONATE [Concomitant]
     Active Substance: SODIUM POLYSTYRENE SULFONATE

REACTIONS (2)
  - Renal impairment [Unknown]
  - Blood potassium increased [Unknown]
